FAERS Safety Report 10748259 (Version 1)
Quarter: 2015Q1

REPORT INFORMATION
  Report Type: Spontaneous
  Country: US (occurrence: None)
  Receive Date: 20150128
  Receipt Date: 20150128
  Transmission Date: 20150721
  Serious: Yes (Hospitalization)
  Sender: FDA-Public Use
  Company Number: None

PATIENT
  Age: 65 Year
  Sex: Male
  Weight: 105.8 kg

DRUGS (2)
  1. SULFAMETHOXAZOLE/TRIMETHOPRIM [Suspect]
     Active Substance: SULFAMETHOXAZOLE\TRIMETHOPRIM
     Indication: SINUSITIS
     Dosage: 2 TAB, BID, PO?
     Route: 048
     Dates: start: 20141209, end: 20141216
  2. OSELTAMIVIR [Suspect]
     Active Substance: OSELTAMIVIR
     Indication: INFLUENZA
     Route: 048
     Dates: start: 20141211, end: 20141216

REACTIONS (2)
  - Rash [None]
  - Drug-induced liver injury [None]

NARRATIVE: CASE EVENT DATE: 20141217
